FAERS Safety Report 5825339-4 (Version None)
Quarter: 2008Q3

REPORT INFORMATION
  Report Type: 
  Country: None (occurrence: None)
  Receive Date: 20080729
  Receipt Date: 20080118
  Transmission Date: 20090109
  Serious: No
  Sender: FDA-Public Use
  Company Number: US-BAYER-200810309BCC

PATIENT
  Age: 55 Year
  Sex: Female
  Weight: 57 kg

DRUGS (3)
  1. ALEVE [Suspect]
     Indication: PAIN
     Route: 048
  2. COUMADIN [Concomitant]
     Dates: start: 19980101
  3. ANTIDEPRESSANT [Concomitant]

REACTIONS (1)
  - BLEEDING TIME PROLONGED [None]
